FAERS Safety Report 24217557 (Version 1)
Quarter: 2024Q3

REPORT INFORMATION
  Report Type: Spontaneous
  Country: US (occurrence: US)
  Receive Date: 20240816
  Receipt Date: 20240816
  Transmission Date: 20241016
  Serious: No
  Sender: GLAXOSMITHKLINE
  Company Number: US-GSKCCFUS-Case-02073778_AE-114702

PATIENT
  Sex: Female

DRUGS (1)
  1. WELLBUTRIN [Suspect]
     Active Substance: BUPROPION HYDROCHLORIDE
     Indication: Product used for unknown indication
     Dosage: 300 MG, QD

REACTIONS (5)
  - Anger [Unknown]
  - Migraine [Unknown]
  - Weight decreased [Unknown]
  - Thinking abnormal [Unknown]
  - Behaviour disorder [Unknown]
